FAERS Safety Report 18438451 (Version 2)
Quarter: 2022Q2

REPORT INFORMATION
  Report Type: Spontaneous
  Country: FR (occurrence: FR)
  Receive Date: 20201028
  Receipt Date: 20220406
  Transmission Date: 20220721
  Serious: Yes (Hospitalization)
  Sender: FDA-Public Use
  Company Number: FR-AFSSAPS-CF20200549

PATIENT
  Age: 79 Year
  Sex: Female
  Weight: 87 kg

DRUGS (20)
  1. DAPTOMYCIN [Suspect]
     Active Substance: DAPTOMYCIN
     Indication: Staphylococcal infection
     Dosage: 700 MILLIGRAM, QD
     Route: 042
     Dates: start: 20200730, end: 20200810
  2. RIFADIN [Suspect]
     Active Substance: RIFAMPIN
     Indication: Staphylococcal infection
     Dosage: 600 MILLIGRAM, QD
     Route: 041
     Dates: start: 20200731, end: 20200810
  3. PIPERACILLIN SODIUM\TAZOBACTAM SODIUM [Suspect]
     Active Substance: PIPERACILLIN SODIUM\TAZOBACTAM SODIUM
     Dosage: UNK
     Dates: start: 20200721
  4. AMIKACIN [Suspect]
     Active Substance: AMIKACIN
     Dosage: UNK
     Dates: start: 20200721
  5. FENOFIBRATE [Suspect]
     Active Substance: FENOFIBRATE
     Dosage: 300 MG 1/DAY
  6. FENOFIBRATE [Suspect]
     Active Substance: FENOFIBRATE
     Dosage: 100 MILIGRAM
  7. ASPIRIN DL-LYSINE [Suspect]
     Active Substance: ASPIRIN DL-LYSINE
     Dosage: 75 MILLIGRAM
  8. ENOXAPARIN [Suspect]
     Active Substance: ENOXAPARIN
     Dosage: 4000 IU INTERNATIONAL UNIT(S)
  9. ATORVASTATIN [Suspect]
     Active Substance: ATORVASTATIN
     Dosage: 80 MILLIGRAM
  10. FUROSEMIDE [Suspect]
     Active Substance: FUROSEMIDE
     Dosage: 40 UNK
  11. ACETAMINOPHEN [Suspect]
     Active Substance: ACETAMINOPHEN
     Dosage: 1000 MILLIGRAM
  12. MORPHINE SULFATE [Suspect]
     Active Substance: MORPHINE SULFATE
     Dosage: 5 MILLIGRAM, PRN
  13. INSULIN ASPART [Concomitant]
     Active Substance: INSULIN ASPART
     Dosage: 5 IU IN THE MORNING
  14. ATACAND [Concomitant]
     Active Substance: CANDESARTAN CILEXETIL
     Dosage: 16 MILLIGRAM, Q24H
  15. LEVOTHYROXINE SODIUM [Concomitant]
     Active Substance: LEVOTHYROXINE SODIUM
     Dosage: 100 MICROGRAMS 1-0-0
  16. EFFERALGAN PARACETAMOL [Concomitant]
     Dosage: 1 GRAM 2-3 /DAY
  17. CHOLECALCIFEROL [Concomitant]
     Active Substance: CHOLECALCIFEROL
     Dosage: 50000 IU INTERNATIONAL UNIT(S), 1 AMPOULLE PER MONTH
     Route: 048
  18. BIFONAZOLE [Concomitant]
     Active Substance: BIFONAZOLE
  19. LAMISIL [Concomitant]
     Active Substance: TERBINAFINE HYDROCHLORIDE
  20. LOPERAMIDE [Concomitant]
     Active Substance: LOPERAMIDE

REACTIONS (3)
  - Cholestasis [Not Recovered/Not Resolved]
  - Rash papular [Recovered/Resolved]
  - Eosinophilia [Recovered/Resolved]

NARRATIVE: CASE EVENT DATE: 20200801
